FAERS Safety Report 8128799-1 (Version None)
Quarter: 2012Q1

REPORT INFORMATION
  Report Type: 
  Country: None (occurrence: None)
  Receive Date: 20120210
  Receipt Date: 20110302
  Transmission Date: 20120608
  Serious: No
  Sender: FDA-Public Use
  Company Number: US-BRISTOL-MYERS SQUIBB COMPANY-15582562

PATIENT
  Age: 41 Year
  Sex: Female

DRUGS (4)
  1. FOLIC ACID [Concomitant]
  2. WATER [Concomitant]
     Dosage: WATER PILL
  3. METHOTREXATE [Concomitant]
  4. ORENCIA [Suspect]
     Indication: RHEUMATOID ARTHRITIS
     Dosage: NO OF INFU =1
     Dates: start: 20110222

REACTIONS (1)
  - FATIGUE [None]
